FAERS Safety Report 13754141 (Version 1)
Quarter: 2017Q3

REPORT INFORMATION
  Report Type: Spontaneous
  Country: US (occurrence: US)
  Receive Date: 20170714
  Receipt Date: 20170714
  Transmission Date: 20171127
  Serious: No
  Sender: FDA-Public Use
  Company Number: None

PATIENT
  Age: 32 Year
  Sex: Female
  Weight: 160.2 kg

DRUGS (1)
  1. INTRON A [Suspect]
     Active Substance: INTERFERON ALFA-2B
     Dates: end: 20140711

REACTIONS (4)
  - Headache [None]
  - Weight decreased [None]
  - Lymphocyte count abnormal [None]
  - Fatigue [None]

NARRATIVE: CASE EVENT DATE: 20150113
